FAERS Safety Report 13029211 (Version 2)
Quarter: 2018Q1

REPORT INFORMATION
  Report Type: Spontaneous
  Country: US (occurrence: US)
  Receive Date: 20161215
  Receipt Date: 20180102
  Transmission Date: 20180508
  Serious: No
  Sender: FDA-Public Use
  Company Number: US-TEVA-696006USA

PATIENT
  Sex: Female

DRUGS (1)
  1. CLONIDINE. [Suspect]
     Active Substance: CLONIDINE
     Indication: HYPERTENSION

REACTIONS (7)
  - Pain in extremity [Unknown]
  - Product adhesion issue [Unknown]
  - Fatigue [Unknown]
  - Limb discomfort [Unknown]
  - Product quality issue [Unknown]
  - Nausea [Unknown]
  - Dyspepsia [Unknown]
